FAERS Safety Report 6740237-X (Version None)
Quarter: 2010Q2

REPORT INFORMATION
  Report Type: 
  Country: None (occurrence: None)
  Receive Date: 20100525
  Receipt Date: 20100517
  Transmission Date: 20101027
  Serious: Yes (Hospitalization)
  Sender: FDA-Public Use
  Company Number: B0656781A

PATIENT
  Age: 58 Year
  Sex: Male

DRUGS (3)
  1. LAMOTRIGINE [Suspect]
     Indication: MANIA
     Dosage: 50MG TWICE PER DAY
     Route: 048
     Dates: start: 20090302, end: 20090307
  2. SODIUM VALPROATE [Concomitant]
     Dosage: 200MG TWICE PER DAY
     Route: 048
  3. ALPRAZOLAM [Concomitant]
     Indication: MANIA

REACTIONS (8)
  - CONDITION AGGRAVATED [None]
  - DERMATITIS EXFOLIATIVE [None]
  - EYELID FUNCTION DISORDER [None]
  - PRURITUS [None]
  - PYREXIA [None]
  - RASH [None]
  - SKIN EXFOLIATION [None]
  - SWELLING FACE [None]
